FAERS Safety Report 24679496 (Version 3)
Quarter: 2025Q1

REPORT INFORMATION
  Report Type: Spontaneous
  Country: CA (occurrence: CA)
  Receive Date: 20241129
  Receipt Date: 20250129
  Transmission Date: 20250409
  Serious: Yes (Other)
  Sender: CELLTRION
  Company Number: CA-PFIZER INC-202400308355

PATIENT

DRUGS (1)
  1. INFLECTRA [Suspect]
     Active Substance: INFLIXIMAB-DYYB
     Indication: Colitis ulcerative
     Route: 042
     Dates: start: 20241016, end: 20241030

REACTIONS (6)
  - Salmonellosis [Unknown]
  - Mitral valve thickening [Unknown]
  - C-reactive protein increased [Unknown]
  - COVID-19 [Unknown]
  - Sinus tachycardia [Unknown]
  - Cough [Unknown]

NARRATIVE: CASE EVENT DATE: 20240101
